FAERS Safety Report 13080182 (Version 2)
Quarter: 2017Q1

REPORT INFORMATION
  Report Type: Spontaneous
  Country: IN (occurrence: IN)
  Receive Date: 20170103
  Receipt Date: 20170104
  Transmission Date: 20170428
  Serious: Yes (Other)
  Sender: FDA-Public Use
  Company Number: IN-ABBVIE-17P-078-1827086-00

PATIENT
  Age: 11 Year
  Sex: Male

DRUGS (2)
  1. FOLVITE (FOLIC ACID) [Concomitant]
     Indication: PRODUCT USED FOR UNKNOWN INDICATION
     Route: 065
  2. VALPARIN CHRONO [Suspect]
     Active Substance: VALPROIC ACID
     Indication: EPILEPSY
     Dosage: DAILY: TABLET, EXTENDED RELEASE
     Route: 048
     Dates: start: 20161109

REACTIONS (2)
  - Seizure [Recovered/Resolved]
  - Medication residue present [Recovered/Resolved]
